FAERS Safety Report 20372492 (Version 1)
Quarter: 2022Q1

REPORT INFORMATION
  Report Type: Spontaneous
  Country: US (occurrence: US)
  Receive Date: 20220125
  Receipt Date: 20220125
  Transmission Date: 20220424
  Serious: No
  Sender: FDA-Public Use
  Company Number: US-Blueprint Medicines Corporation-SP-US-2022-000136

PATIENT
  Sex: Female

DRUGS (1)
  1. AYVAKIT [Suspect]
     Active Substance: AVAPRITINIB
     Indication: Systemic mastocytosis
     Route: 048
     Dates: start: 20211210

REACTIONS (5)
  - Tryptase decreased [Unknown]
  - Product dose omission issue [Unknown]
  - Alopecia [Unknown]
  - Hair colour changes [Unknown]
  - Rash [Unknown]
